FAERS Safety Report 8220047-7 (Version None)
Quarter: 2012Q1

REPORT INFORMATION
  Report Type: 
  Country: None (occurrence: None)
  Receive Date: 20120320
  Receipt Date: 20111130
  Transmission Date: 20120608
  Serious: Yes (Other)
  Sender: FDA-Public Use
  Company Number: US-ROCHE-1010906

PATIENT
  Sex: Male
  Weight: 78.6 kg

DRUGS (8)
  1. ADVAIR HFA [Concomitant]
     Indication: ASTHMA
     Dosage: 2 PUFFS
  2. XOLAIR [Suspect]
     Indication: ASTHMA
     Route: 058
     Dates: start: 20111019, end: 20111031
  3. RANITIDINE [Concomitant]
  4. PREDNISONE [Concomitant]
     Indication: ASTHMA
  5. SINGULAIR [Concomitant]
     Indication: ASTHMA
     Route: 048
  6. XOPENEX HFA [Concomitant]
     Indication: ASTHMA
     Dosage: AS PER NEED 2 PUFFS
  7. SYMBICORT [Concomitant]
     Indication: ASTHMA
     Dosage: 160/45
     Route: 048
  8. ZYRTEC-D 12 HOUR [Concomitant]
     Indication: RHINITIS ALLERGIC
     Route: 048

REACTIONS (6)
  - HOT FLUSH [None]
  - PRURITUS [None]
  - FLUSHING [None]
  - BRONCHOSPASM [None]
  - NASAL CONGESTION [None]
  - DYSPEPSIA [None]
